FAERS Safety Report 9276767 (Version 1)
Quarter: 2013Q2

REPORT INFORMATION
  Report Type: Report from Study
  Country: US (occurrence: US)
  Receive Date: 20130507
  Receipt Date: 20130507
  Transmission Date: 20140414
  Serious: Yes (Hospitalization)
  Sender: FDA-Public Use
  Company Number: US-ACTELION-A-US2013-81691

PATIENT
  Age: 74 Year
  Sex: Female

DRUGS (4)
  1. VELETRI [Suspect]
     Indication: PULMONARY ARTERIAL HYPERTENSION
     Dosage: 30.4 NG/KG, PER MIN
     Route: 042
     Dates: start: 20130305
  2. TRACLEER [Suspect]
     Indication: PULMONARY ARTERIAL HYPERTENSION
     Dosage: UNK
     Route: 048
     Dates: start: 20130205
  3. COUMADIN [Concomitant]
  4. ADCIRCA [Concomitant]

REACTIONS (5)
  - Atrial thrombosis [Recovered/Resolved]
  - Sinusitis [Recovered/Resolved]
  - Chest discomfort [Recovered/Resolved]
  - Swelling [Recovered/Resolved]
  - Feeling abnormal [Recovered/Resolved]
